FAERS Safety Report 20087569 (Version 8)
Quarter: 2024Q1

REPORT INFORMATION
  Report Type: Spontaneous
  Country: US (occurrence: US)
  Receive Date: 20211118
  Receipt Date: 20240103
  Transmission Date: 20240409
  Serious: Yes (Other)
  Sender: FDA-Public Use
  Company Number: US-PFIZER INC-202101546256

PATIENT
  Age: 78 Year
  Sex: Female
  Weight: 59.42 kg

DRUGS (4)
  1. IBRANCE [Suspect]
     Active Substance: PALBOCICLIB
     Indication: Breast cancer metastatic
     Dosage: 125 MG, CYCLIC
     Route: 048
     Dates: start: 202110
  2. IBRANCE [Suspect]
     Active Substance: PALBOCICLIB
     Dosage: 75 MG, CYCLIC (ONCE A DAY FOR 3 WEEKS THEN OFF FOR 1 WEEK.)
     Route: 048
     Dates: start: 202110
  3. IBRANCE [Suspect]
     Active Substance: PALBOCICLIB
     Dosage: 75 MG, CYCLIC (TAKE ONE TABLET DAILY ON DAYS 1-21 OF EACH 28 DAY CYCLE)
     Route: 048
     Dates: start: 20220218
  4. LETROZOLE [Concomitant]
     Active Substance: LETROZOLE
     Dosage: 2.5 MG, 1X/DAY

REACTIONS (18)
  - Nausea [Recovering/Resolving]
  - Gastrooesophageal reflux disease [Recovering/Resolving]
  - Abdominal discomfort [Recovering/Resolving]
  - Constipation [Not Recovered/Not Resolved]
  - Product dose omission issue [Unknown]
  - Product dispensing error [Unknown]
  - Proctalgia [Unknown]
  - Weight decreased [Unknown]
  - Oropharyngeal pain [Recovered/Resolved]
  - Red blood cell count decreased [Unknown]
  - Dysphagia [Unknown]
  - White blood cell count decreased [Unknown]
  - Neutrophil count decreased [Unknown]
  - Cough [Unknown]
  - Fatigue [Unknown]
  - Full blood count abnormal [Unknown]
  - Nervousness [Unknown]
  - Product physical issue [Unknown]
